FAERS Safety Report 12397401 (Version 1)
Quarter: 2016Q2

REPORT INFORMATION
  Report Type: Spontaneous
  Country: US (occurrence: None)
  Receive Date: 20160523
  Receipt Date: 20160523
  Transmission Date: 20160815
  Serious: Yes (Disabling)
  Sender: FDA-Public Use
  Company Number: None

PATIENT
  Age: 56 Year
  Sex: Male
  Weight: 103.42 kg

DRUGS (3)
  1. MANUAL WHEELCHAIR [Concomitant]
  2. CASODEX (GENERIC BICALUTAMIDE), 50 MG [Suspect]
     Active Substance: BICALUTAMIDE
     Indication: PROSTATE CANCER
     Dosage: 30 TABLET(S)  IN THE MORNING TAKEN BY MOUTH
     Route: 048
  3. NEURONTIN [Concomitant]
     Active Substance: GABAPENTIN

REACTIONS (3)
  - Drug prescribing error [None]
  - Incorrect drug administration duration [None]
  - Erectile dysfunction [None]

NARRATIVE: CASE EVENT DATE: 20151201
